FAERS Safety Report 16703471 (Version 1)
Quarter: 2019Q3

REPORT INFORMATION
  Report Type: Report from Study
  Country: JP (occurrence: JP)
  Receive Date: 20190814
  Receipt Date: 20190814
  Transmission Date: 20191004
  Serious: Yes (Hospitalization)
  Sender: FDA-Public Use
  Company Number: PHJP2019JP010222

PATIENT
  Age: 56 Year
  Sex: Female
  Weight: 46.8 kg

DRUGS (2)
  1. HALAVEN [Suspect]
     Active Substance: ERIBULIN MESYLATE
     Indication: SOFT TISSUE SARCOMA
     Dosage: 0.7 MG/M2, UNK
     Route: 065
     Dates: start: 20190618, end: 20190618
  2. VOTRIENT [Suspect]
     Active Substance: PAZOPANIB HYDROCHLORIDE
     Indication: SOFT TISSUE SARCOMA
     Dosage: 200 MG, UNK
     Route: 048
     Dates: start: 20190618, end: 20190624

REACTIONS (1)
  - Pyrexia [Recovering/Resolving]

NARRATIVE: CASE EVENT DATE: 20190708
